FAERS Safety Report 8896634 (Version 1)
Quarter: 2012Q4

REPORT INFORMATION
  Report Type: 
  Country: US (occurrence: US)
  Receive Date: 20121108
  Receipt Date: 20121108
  Transmission Date: 20130627
  Serious: No
  Sender: FDA-Public Use
  Company Number: US-AMGEN-USASP2012028158

PATIENT
  Sex: Female

DRUGS (11)
  1. ENBREL [Suspect]
     Indication: PRODUCT USED FOR UNKNOWN INDICATION
     Dosage: 50 mg, qwk
     Route: 058
  2. LEFLUNOMIDE [Concomitant]
     Dosage: 10 mg, UNK
  3. IBUPROFEN [Concomitant]
     Dosage: 200 mg, UNK
  4. PRAVASTATIN [Concomitant]
     Dosage: 10 mg, UNK
  5. LISINOPRIL [Concomitant]
     Dosage: 2.5 mg, UNK
  6. CALCIUM CITRATE + D [Concomitant]
     Dosage: UNK
  7. VITAMIN D /00107901/ [Concomitant]
     Dosage: UNK
  8. HYDROXYCHLOROQUINE [Concomitant]
     Dosage: 200 mg, UNK
  9. OMEPRAZOLE [Concomitant]
     Dosage: 20 mg, UNK
  10. SLEEP AID                          /00000402/ [Concomitant]
     Dosage: 25 mg, UNK
  11. FLOVENT [Concomitant]
     Dosage: 110 mug, UNK

REACTIONS (1)
  - Urticaria [Unknown]
